FAERS Safety Report 6541340-X (Version None)
Quarter: 2010Q1

REPORT INFORMATION
  Report Type: 
  Country: None (occurrence: None)
  Receive Date: 20100118
  Receipt Date: 20100107
  Transmission Date: 20100710
  Serious: Yes (Hospitalization)
  Sender: FDA-Public Use
  Company Number: PHEH2009US13881

PATIENT
  Sex: Male

DRUGS (5)
  1. AFINITOR [Suspect]
     Indication: METASTATIC RENAL CELL CARCINOMA
     Dosage: 1/2 OF 10 MG TABLET
     Route: 048
     Dates: start: 20090411
  2. ALLOPURINOL [Concomitant]
     Dosage: 100 MG, UNK
  3. PERCOCET [Concomitant]
  4. VICODIN [Concomitant]
  5. KLONOPIN [Concomitant]

REACTIONS (9)
  - CARDIOMEGALY [None]
  - CATHETER PLACEMENT [None]
  - DIZZINESS [None]
  - FATIGUE [None]
  - PERICARDIAL DRAINAGE [None]
  - PERICARDIAL EFFUSION [None]
  - PLEURAL EFFUSION [None]
  - PNEUMOPERICARDIUM [None]
  - PNEUMOTHORAX [None]
